FAERS Safety Report 9712345 (Version 1)
Quarter: 2013Q4

REPORT INFORMATION
  Report Type: Spontaneous
  Country: US (occurrence: US)
  Receive Date: 20131126
  Receipt Date: 20131126
  Transmission Date: 20140711
  Serious: No
  Sender: FDA-Public Use
  Company Number: US-BRISTOL-MYERS SQUIBB COMPANY-19165646

PATIENT
  Age: 70 Year
  Sex: Female
  Weight: 139.68 kg

DRUGS (23)
  1. BYDUREON [Suspect]
     Indication: TYPE 2 DIABETES MELLITUS
     Route: 058
     Dates: start: 201307
  2. ALLEGRA [Concomitant]
  3. ZOLPIDEM [Concomitant]
  4. ASPIRIN [Concomitant]
  5. VENLAFAXINE HCL [Concomitant]
     Dosage: 1DF:150 UNIT NOS
  6. METFORMIN [Concomitant]
  7. GLYBURIDE [Concomitant]
     Dosage: 2 TABS
  8. LAMOTRIGINE [Concomitant]
  9. LEVOXYL [Concomitant]
  10. NABUMETONE [Concomitant]
  11. OMEPRAZOLE [Concomitant]
  12. PROPRANOLOL [Concomitant]
  13. VERAPAMIL [Concomitant]
     Dosage: 1DF:2/240 UNIT NOS
  14. TRIAMTERENE + HCTZ [Concomitant]
     Dosage: 1DF:75/50 UNIT NOS
  15. ALEVE [Concomitant]
  16. NITROSTAT [Concomitant]
     Dosage: TAB
     Route: 060
  17. HYDROCODONE [Concomitant]
     Dosage: 1DF:5/500MG
  18. VITAMIN D [Concomitant]
  19. IRON [Concomitant]
  20. CLOBETASOL [Concomitant]
     Dosage: 1DF:PROP 0.05 CREAM
  21. AMMONIUM LACTATE [Concomitant]
     Dosage: CREAM
  22. DESONIDE [Concomitant]
     Dosage: 1DF:CREAM 0.05 UNIT NOS
  23. ECONAZOLE [Concomitant]

REACTIONS (2)
  - Tremor [Unknown]
  - Pain in extremity [Unknown]
